FAERS Safety Report 16594890 (Version 1)
Quarter: 2019Q3

REPORT INFORMATION
  Report Type: Report from Study
  Country: US (occurrence: US)
  Receive Date: 20190718
  Receipt Date: 20190718
  Transmission Date: 20191004
  Serious: Yes (Hospitalization, Other)
  Sender: FDA-Public Use
  Company Number: US-GILEAD-2019-0416316

PATIENT
  Age: 19 Year
  Sex: Female
  Weight: 61 kg

DRUGS (27)
  1. KALYDECO [Concomitant]
     Active Substance: IVACAFTOR
  2. SIRTURO [Concomitant]
     Active Substance: BEDAQUILINE FUMARATE
  3. ALBUTEROL [SALBUTAMOL] [Concomitant]
     Active Substance: ALBUTEROL
  4. CLOFAZIMINE [Concomitant]
     Active Substance: CLOFAZIMINE
  5. VITAMIN A [RETINOL;TOCOPHEROL] [Concomitant]
  6. AZITHROMYCIN ANHYDROUS. [Concomitant]
     Active Substance: AZITHROMYCIN ANHYDROUS
  7. DORNASE ALFA. [Concomitant]
     Active Substance: DORNASE ALFA
  8. DRONABINOL. [Concomitant]
     Active Substance: DRONABINOL
  9. ASPIRIN 81 [Concomitant]
     Active Substance: ASPIRIN
  10. DIPHENHYDRAMINE. [Concomitant]
     Active Substance: DIPHENHYDRAMINE
  11. LEVALBUTEROL TARTRATE HFA [Concomitant]
  12. GABAPENTIN. [Concomitant]
     Active Substance: GABAPENTIN
  13. ONDANSETRON [Concomitant]
     Active Substance: ONDANSETRON
  14. ETHAMBUTOL [Concomitant]
     Active Substance: ETHAMBUTOL HYDROCHLORIDE
  15. AZTREONAM LYSINE [Suspect]
     Active Substance: AZTREONAM LYSINE
     Indication: CYSTIC FIBROSIS
     Dosage: 75 MG
     Route: 055
  16. HUMALOG [Concomitant]
     Active Substance: INSULIN LISPRO
  17. LEVALBUTEROL [LEVOSALBUTAMOL] [Concomitant]
     Active Substance: LEVALBUTEROL
  18. ADVAIR HFA [Concomitant]
     Active Substance: FLUTICASONE PROPIONATE\SALMETEROL XINAFOATE
  19. FEXOFENADINE [Concomitant]
     Active Substance: FEXOFENADINE HYDROCHLORIDE
  20. BUTALBITAL AND ACETAMINOPHEN [Concomitant]
     Active Substance: ACETAMINOPHEN\BUTALBITAL
  21. NYSTATIN. [Concomitant]
     Active Substance: NYSTATIN
  22. METOCLOPRAMIDE. [Concomitant]
     Active Substance: METOCLOPRAMIDE
  23. AMBIEN [Concomitant]
     Active Substance: ZOLPIDEM TARTRATE
  24. OMEPRAZOLE. [Concomitant]
     Active Substance: OMEPRAZOLE
  25. AMYLASE/LIPASE/PROTEASE [Concomitant]
     Active Substance: AMYLASE\LIPASE\PROTEASE
  26. PROCHLORPERAZINE. [Concomitant]
     Active Substance: PROCHLORPERAZINE
     Indication: NAUSEA
  27. ESCITALOPRAM [Concomitant]
     Active Substance: ESCITALOPRAM OXALATE

REACTIONS (8)
  - Bacteraemia [Unknown]
  - Haemoptysis [Unknown]
  - Stoma site discomfort [Not Recovered/Not Resolved]
  - Cough [Unknown]
  - Catheter site erythema [Recovering/Resolving]
  - Sunburn [Unknown]
  - Cystic fibrosis [Unknown]
  - Weight decreased [Not Recovered/Not Resolved]

NARRATIVE: CASE EVENT DATE: 201904
